FAERS Safety Report 7936097-1 (Version None)
Quarter: 2011Q4

REPORT INFORMATION
  Report Type: 
  Country: None (occurrence: None)
  Receive Date: 20111121
  Receipt Date: 20111103
  Transmission Date: 20120403
  Serious: Yes (Life-Threatening, Other)
  Sender: FDA-Public Use
  Company Number: 2011MA016165

PATIENT
  Age: 65 Year
  Sex: Male
  Weight: 74 kg

DRUGS (8)
  1. METFORMIN HCL [Concomitant]
  2. GLYCERYLTRINITRATE [Concomitant]
  3. RANITIDINE [Suspect]
  4. AMLODIPINE [Concomitant]
  5. LOSARTAN POTASSIUM [Concomitant]
  6. DERIPHYLINE [Concomitant]
  7. POTASSIUM HYDROCHLOROTHIAZIDE [Concomitant]
  8. CLOPITAB [Concomitant]

REACTIONS (3)
  - CARDIOPULMONARY FAILURE [None]
  - SKIN TEST POSITIVE [None]
  - ANAPHYLACTIC REACTION [None]
